FAERS Safety Report 9192514 (Version 10)
Quarter: 2013Q4

REPORT INFORMATION
  Report Type: Spontaneous
  Country: US (occurrence: US)
  Receive Date: 20130327
  Receipt Date: 20131003
  Transmission Date: 20140711
  Serious: Yes (Other)
  Sender: FDA-Public Use
  Company Number: US-PFIZER INC-2013092304

PATIENT
  Age: 74 Year
  Sex: Female
  Weight: 68.03 kg

DRUGS (14)
  1. DETROL LA [Suspect]
     Indication: HYPERTONIC BLADDER
     Dosage: 4 MG, 1X/DAY
     Route: 048
     Dates: start: 2005
  2. DETROL LA [Suspect]
     Dosage: 4 MG, 1X/DAY
     Route: 048
     Dates: start: 201303, end: 201304
  3. DETROL LA [Suspect]
     Dosage: 2 MG, UNK
     Route: 048
  4. DETROL LA [Suspect]
     Dosage: 4 MG, UNK
     Route: 048
  5. DETROL [Suspect]
     Dosage: UNK
  6. TOVIAZ [Suspect]
     Dosage: UNK
  7. IBANDRONATE SODIUM [Suspect]
     Dosage: TABLETS SPLT
  8. PRAVASTATIN SODIUM [Suspect]
     Indication: BLOOD CHOLESTEROL INCREASED
     Dosage: TABLET SPLIT
     Route: 048
     Dates: start: 2013, end: 2013
  9. VESICARE [Suspect]
     Dosage: UNK
  10. OXYBUTYNIN [Suspect]
     Dosage: UNK
  11. ZETIA [Suspect]
     Indication: BLOOD CHOLESTEROL INCREASED
     Dosage: UNK
  12. FOSAMAX [Suspect]
     Dosage: UNK
  13. ACTONEL [Concomitant]
     Indication: BONE DISORDER
     Dosage: UNK
  14. ACTONEL [Concomitant]
     Dosage: UNK

REACTIONS (20)
  - Chest pain [Recovered/Resolved]
  - Chest pain [Unknown]
  - Pain in jaw [Unknown]
  - Extrasystoles [Unknown]
  - Gait disturbance [Unknown]
  - Musculoskeletal chest pain [Recovered/Resolved]
  - Flatulence [Recovering/Resolving]
  - Abdominal pain upper [Unknown]
  - Fatigue [Recovered/Resolved]
  - Gastrooesophageal reflux disease [Unknown]
  - Eructation [Unknown]
  - Constipation [Unknown]
  - Oropharyngeal pain [Unknown]
  - Dry mouth [Recovered/Resolved]
  - Flushing [Recovered/Resolved]
  - Pain in extremity [Recovered/Resolved]
  - Arthralgia [Recovered/Resolved]
  - Joint swelling [Unknown]
  - Local swelling [Unknown]
  - Hypersensitivity [Unknown]
